FAERS Safety Report 13843023 (Version 1)
Quarter: 2017Q3

REPORT INFORMATION
  Report Type: Report from Study
  Country: US (occurrence: US)
  Receive Date: 20170808
  Receipt Date: 20170808
  Transmission Date: 20171127
  Serious: Yes (Other)
  Sender: FDA-Public Use
  Company Number: US-SA-2017SA143934

PATIENT
  Age: 50 Year

DRUGS (2)
  1. FLUDARABINE PHOSPHATE. [Suspect]
     Active Substance: FLUDARABINE PHOSPHATE
     Indication: MANTLE CELL LYMPHOMA
     Route: 041
  2. CYCLOPHOSPHAMIDE. [Suspect]
     Active Substance: CYCLOPHOSPHAMIDE
     Indication: MANTLE CELL LYMPHOMA
     Route: 041

REACTIONS (10)
  - Muscular weakness [Unknown]
  - Pyrexia [Unknown]
  - Agitation [Unknown]
  - Lymphocyte count decreased [Unknown]
  - Peripheral motor neuropathy [Unknown]
  - Gait disturbance [Unknown]
  - Confusional state [Unknown]
  - Aphasia [Unknown]
  - Ataxia [Unknown]
  - Tremor [Unknown]
